FAERS Safety Report 5852039-7 (Version None)
Quarter: 2008Q3

REPORT INFORMATION
  Report Type: 
  Country: None (occurrence: None)
  Receive Date: 20080820
  Receipt Date: 20080808
  Transmission Date: 20090109
  Serious: Yes (Life-Threatening, Hospitalization)
  Sender: FDA-Public Use
  Company Number: FR-PFIZER INC-2008067591

PATIENT
  Sex: Female

DRUGS (5)
  1. RELPAX [Suspect]
     Indication: MIGRAINE
     Dosage: DAILY DOSE:40MG
     Route: 048
     Dates: start: 20070101, end: 20080717
  2. MEDIATOR [Suspect]
     Indication: OBESITY
  3. TAHOR [Concomitant]
  4. BURINEX [Concomitant]
     Indication: OEDEMA PERIPHERAL
     Dosage: DAILY DOSE:1MG
     Route: 048
  5. ISOPTIN [Concomitant]
     Indication: ANGINA PECTORIS
     Route: 048

REACTIONS (1)
  - PRINZMETAL ANGINA [None]
